FAERS Safety Report 9258847 (Version 2)
Quarter: 2013Q2

REPORT INFORMATION
  Report Type: Spontaneous
  Country: US (occurrence: US)
  Receive Date: 20130426
  Receipt Date: 20130508
  Transmission Date: 20140414
  Serious: Yes (Hospitalization)
  Sender: FDA-Public Use
  Company Number: US-LUNDBECK-DKLU1090492

PATIENT
  Age: 1 Year
  Sex: Male
  Weight: 12.8 kg

DRUGS (2)
  1. SABRIL (FOR ORAL SOLUTION) [Suspect]
     Indication: INFANTILE SPASMS
     Route: 048
     Dates: start: 20121120
  2. SABRIL (FOR ORAL SOLUTION) [Suspect]
     Route: 048
     Dates: start: 20121120

REACTIONS (6)
  - Bronchiolitis [Recovering/Resolving]
  - Respiratory failure [Recovering/Resolving]
  - Atelectasis [Recovering/Resolving]
  - Respiratory syncytial virus infection [Recovering/Resolving]
  - Rhinovirus infection [Recovering/Resolving]
  - Otitis media [Unknown]
